FAERS Safety Report 5245016-0 (Version None)
Quarter: 2007Q1

REPORT INFORMATION
  Report Type: 
  Country: None (occurrence: None)
  Receive Date: 20070223
  Receipt Date: 20070212
  Transmission Date: 20070707
  Serious: Yes (Hospitalization, Other)
  Sender: FDA-Public Use
  Company Number: PHRM2007FR00813

PATIENT
  Age: 69 Year
  Sex: Female
  Weight: 49 kg

DRUGS (4)
  1. ACUPAN [Suspect]
     Indication: NECK PAIN
     Dosage: 20 MG, QD
     Route: 030
     Dates: start: 20070117, end: 20070120
  2. TAREG [Suspect]
     Indication: HYPERTENSION
     Dosage: 1 DF, QD
     Route: 048
     Dates: end: 20070120
  3. PRACTAZIN [Suspect]
     Indication: HYPERTENSION
     Dosage: 1 DF, QD
     Route: 048
     Dates: end: 20070120
  4. KERLONE [Suspect]
     Indication: HYPERTENSION
     Dosage: 20 MG, QD
     Route: 048
     Dates: end: 20070120

REACTIONS (13)
  - ANOREXIA [None]
  - BLOOD PRESSURE DIASTOLIC DECREASED [None]
  - CONFUSIONAL STATE [None]
  - DEHYDRATION [None]
  - FALL [None]
  - FLUID REPLACEMENT [None]
  - HEAD INJURY [None]
  - HYPOKALAEMIA [None]
  - HYPONATRAEMIA [None]
  - MALAISE [None]
  - NAUSEA [None]
  - NECK PAIN [None]
  - VOMITING [None]
